FAERS Safety Report 10174873 (Version 2)
Quarter: 2014Q2

REPORT INFORMATION
  Report Type: Spontaneous
  Country: US (occurrence: US)
  Receive Date: 20140515
  Receipt Date: 20140515
  Transmission Date: 20141212
  Serious: No
  Sender: FDA-Public Use
  Company Number: US-BAYER-2014-072451

PATIENT
  Age: 50 Year
  Sex: Female
  Weight: 93 kg

DRUGS (10)
  1. ESTRADIOL HEMIHYDRATE (PATCH) [Suspect]
     Indication: COITAL BLEEDING
     Dosage: 1 DF, OW
     Route: 062
     Dates: start: 20140417
  2. ESTRADIOL HEMIHYDRATE (PATCH) [Suspect]
     Indication: DYSPAREUNIA
  3. ESTRADIOL HEMIHYDRATE (PATCH) [Suspect]
     Indication: LACRIMATION INCREASED
  4. LIPITOR [Concomitant]
     Indication: BLOOD CHOLESTEROL ABNORMAL
     Dosage: 40 MG, QD
     Route: 048
     Dates: start: 2012
  5. ESTRACE [Concomitant]
     Indication: GENITAL INJURY
     Dosage: 1 G, QON
     Route: 067
     Dates: start: 201401
  6. ESTRACE [Concomitant]
     Indication: COITAL BLEEDING
  7. ESTRACE [Concomitant]
     Indication: DYSPAREUNIA
  8. DIAZEPAM [Concomitant]
     Indication: GENITAL INJURY
     Dosage: 1 DF, PRN (1 HOUR BEFORE INTERCOURSE)
     Route: 067
     Dates: start: 201401
  9. DIAZEPAM [Concomitant]
     Indication: COITAL BLEEDING
  10. DIAZEPAM [Concomitant]
     Indication: DYSPAREUNIA

REACTIONS (3)
  - Incorrect drug administration duration [Not Recovered/Not Resolved]
  - Product adhesion issue [Not Recovered/Not Resolved]
  - Drug ineffective [Not Recovered/Not Resolved]
